FAERS Safety Report 4700035-5 (Version None)
Quarter: 2005Q2

REPORT INFORMATION
  Report Type: 
  Country: None (occurrence: None)
  Receive Date: 20050623
  Receipt Date: 20041026
  Transmission Date: 20051028
  Serious: Yes (Hospitalization)
  Sender: FDA-Public Use
  Company Number: US-JNJFOC-20041100833

PATIENT
  Age: 26 Year
  Sex: Male
  Weight: 99.7913 kg

DRUGS (2)
  1. HALDOL [Suspect]
     Indication: SCHIZOPHRENIA
     Dates: start: 20040210, end: 20040607
  2. AKINETON [Concomitant]

REACTIONS (2)
  - MEDICATION ERROR [None]
  - PERSECUTORY DELUSION [None]
